FAERS Safety Report 16285900 (Version 1)
Quarter: 2019Q2

REPORT INFORMATION
  Report Type: Spontaneous
  Country: FR (occurrence: FR)
  Receive Date: 20190508
  Receipt Date: 20190508
  Transmission Date: 20190711
  Serious: Yes (Hospitalization)
  Sender: FDA-Public Use
  Company Number: FR-ROCHE-2313237

PATIENT
  Age: 66 Year
  Sex: Male
  Weight: 67 kg

DRUGS (9)
  1. ROACTEMRA [Suspect]
     Active Substance: TOCILIZUMAB
     Indication: RHEUMATOID ARTHRITIS
     Route: 058
     Dates: start: 20161115, end: 20181218
  2. IMETH [METHOTREXATE] [Concomitant]
     Active Substance: METHOTREXATE
  3. METFORMINE [METFORMIN] [Concomitant]
     Active Substance: METFORMIN HYDROCHLORIDE
  4. KARDEGIC [Concomitant]
     Active Substance: ASPIRIN DL-LYSINE
  5. IKOREL [Concomitant]
     Active Substance: NICORANDIL
  6. SPECIAFOLDINE [Concomitant]
     Active Substance: FOLIC ACID
  7. CRESTOR [Concomitant]
     Active Substance: ROSUVASTATIN CALCIUM
  8. TERBINAFINE. [Concomitant]
     Active Substance: TERBINAFINE
  9. MONO TILDIEM [Concomitant]
     Active Substance: DILTIAZEM HYDROCHLORIDE

REACTIONS (1)
  - Angiodermatitis [Recovered/Resolved with Sequelae]

NARRATIVE: CASE EVENT DATE: 20190102
